FAERS Safety Report 10637345 (Version 1)
Quarter: 2014Q4

REPORT INFORMATION
  Report Type: Spontaneous
  Country: US (occurrence: None)
  Receive Date: 20141204
  Receipt Date: 20141204
  Transmission Date: 20150529
  Serious: No
  Sender: FDA-Public Use
  Company Number: None

PATIENT
  Age: 52 Year
  Sex: Male
  Weight: 106.14 kg

DRUGS (2)
  1. RANEXA [Suspect]
     Active Substance: RANOLAZINE
     Indication: CARDIOVASCULAR DISORDER
     Dosage: TAKEN BY MOUTH
     Dates: start: 20141121, end: 20141201
  2. RANEXA [Suspect]
     Active Substance: RANOLAZINE
     Indication: ANGINA PECTORIS
     Dosage: TAKEN BY MOUTH
     Dates: start: 20141121, end: 20141201

REACTIONS (3)
  - Vomiting [None]
  - Headache [None]
  - Dizziness [None]

NARRATIVE: CASE EVENT DATE: 20141201
